FAERS Safety Report 5777929-5 (Version None)
Quarter: 2008Q2

REPORT INFORMATION
  Report Type: 
  Country: None (occurrence: None)
  Receive Date: 20080619
  Receipt Date: 20080611
  Transmission Date: 20081010
  Serious: Yes (Other)
  Sender: FDA-Public Use
  Company Number: GB-RANBAXY-2008RR-15799

PATIENT

DRUGS (2)
  1. AMLODIPINE [Suspect]
     Indication: HYPERTENSION
     Dosage: 5 MG, QD
  2. ATENOLOL [Concomitant]
     Dosage: 100 MG, QD

REACTIONS (1)
  - PRIMARY HYPERALDOSTERONISM [None]
